FAERS Safety Report 19575875 (Version 1)
Quarter: 2021Q3

REPORT INFORMATION
  Report Type: Spontaneous
  Country: RU (occurrence: RU)
  Receive Date: 20210719
  Receipt Date: 20210719
  Transmission Date: 20211014
  Serious: Yes (Other)
  Sender: FDA-Public Use
  Company Number: RU-SUN PHARMACEUTICAL INDUSTRIES LTD-2021R1-303284

PATIENT
  Age: 31 Year
  Sex: Male

DRUGS (10)
  1. CIFRAN CT [Suspect]
     Active Substance: CIPROFLOXACIN\TINIDAZOLE
     Indication: MESENTERITIS
     Dosage: 1 TABLET, BID
     Route: 065
     Dates: start: 20210115, end: 20210119
  2. CIFRAN CT [Suspect]
     Active Substance: CIPROFLOXACIN\TINIDAZOLE
     Indication: COLITIS
  3. NIASPAM [Suspect]
     Active Substance: MEBEVERINE HYDROCHLORIDE
     Indication: MESENTERITIS
     Dosage: UNK
     Route: 065
  4. CREON [Suspect]
     Active Substance: PANCRELIPASE AMYLASE\PANCRELIPASE LIPASE\PANCRELIPASE PROTEASE
     Indication: MESENTERITIS
     Dosage: UNK
     Route: 065
  5. PEPSAN [PEPSIN] [Suspect]
     Active Substance: PEPSIN
     Indication: COLITIS
  6. BIFIFORM [Suspect]
     Active Substance: BIFIDOBACTERIUM LONGUM
     Indication: COLITIS
  7. PEPSAN [PEPSIN] [Suspect]
     Active Substance: PEPSIN
     Indication: MESENTERITIS
     Dosage: UNK
     Route: 065
  8. NIASPAM [Suspect]
     Active Substance: MEBEVERINE HYDROCHLORIDE
     Indication: COLITIS
  9. BIFIFORM [Suspect]
     Active Substance: BIFIDOBACTERIUM LONGUM
     Indication: MESENTERITIS
     Dosage: UNK
     Route: 065
  10. CREON [Suspect]
     Active Substance: PANCRELIPASE AMYLASE\PANCRELIPASE LIPASE\PANCRELIPASE PROTEASE
     Indication: COLITIS

REACTIONS (7)
  - Drug ineffective [Unknown]
  - Abdominal pain [Not Recovered/Not Resolved]
  - Off label use [Not Recovered/Not Resolved]
  - Abdominal discomfort [Not Recovered/Not Resolved]
  - Abnormal faeces [Not Recovered/Not Resolved]
  - Burning sensation [Not Recovered/Not Resolved]
  - Muscular weakness [Not Recovered/Not Resolved]

NARRATIVE: CASE EVENT DATE: 20210116
